FAERS Safety Report 5158606-0 (Version None)
Quarter: 2006Q4

REPORT INFORMATION
  Report Type: 
  Country: None (occurrence: None)
  Receive Date: 20061128
  Receipt Date: 20061117
  Transmission Date: 20070319
  Serious: Yes (Hospitalization)
  Sender: FDA-Public Use
  Company Number: US-MERCK-0611USA05593

PATIENT
  Age: 60 Year
  Sex: Male

DRUGS (3)
  1. ZOCOR [Suspect]
     Indication: HYPERCHOLESTEROLAEMIA
     Route: 048
     Dates: start: 20050801
  2. LASIX [Concomitant]
     Route: 065
  3. LIPITOR [Concomitant]
     Indication: HYPERTENSION
     Route: 065

REACTIONS (2)
  - HAEMATOCHEZIA [None]
  - RENAL FAILURE [None]
